FAERS Safety Report 25792363 (Version 1)
Quarter: 2025Q3

REPORT INFORMATION
  Report Type: Spontaneous
  Country: US (occurrence: US)
  Receive Date: 20250911
  Receipt Date: 20250911
  Transmission Date: 20251021
  Serious: No
  Sender: VERTEX
  Company Number: US-VERTEX PHARMACEUTICALS-2024-015563

PATIENT
  Sex: Female

DRUGS (9)
  1. TRIKAFTA [Suspect]
     Active Substance: ELEXACAFTOR\IVACAFTOR\TEZACAFTOR
     Indication: Cystic fibrosis
     Dosage: 2 TAB IN AM, 1 TAB IN PM
     Route: 048
     Dates: start: 20230602
  2. AZTREONAM LYSINE [Suspect]
     Active Substance: AZTREONAM LYSINE
     Indication: Product used for unknown indication
  3. ALBUTEROL [Concomitant]
     Active Substance: ALBUTEROL
  4. CAYSTON [Concomitant]
     Active Substance: AZTREONAM
  5. FASENRA [Concomitant]
     Active Substance: BENRALIZUMAB
  6. GABAPENTIN [Concomitant]
     Active Substance: GABAPENTIN
  7. MELOXICAM [Concomitant]
     Active Substance: MELOXICAM
  8. PULMOZYME [Concomitant]
     Active Substance: DORNASE ALFA
     Route: 055
  9. PULMOZYME [Concomitant]
     Active Substance: DORNASE ALFA
     Route: 055

REACTIONS (3)
  - Disturbance in social behaviour [Unknown]
  - Loss of personal independence in daily activities [Unknown]
  - Sleep disorder [Not Recovered/Not Resolved]
